FAERS Safety Report 4791531-3 (Version None)
Quarter: 2005Q4

REPORT INFORMATION
  Report Type: 
  Country: None (occurrence: None)
  Receive Date: 20051007
  Receipt Date: 20050118
  Transmission Date: 20060501
  Serious: No
  Sender: FDA-Public Use
  Company Number: US-BRISTOL-MYERS SQUIBB COMPANY-12829727

PATIENT
  Age: 78 Year
  Sex: Female

DRUGS (12)
  1. AVAPRO [Suspect]
     Indication: HYPERTENSION
     Route: 048
     Dates: start: 20020528
  2. NORVASC [Concomitant]
  3. METFORMIN HCL [Concomitant]
  4. CARDIZEM [Concomitant]
  5. ZETIA [Concomitant]
  6. NITROGLYCERIN [Concomitant]
  7. TOPROL-XL [Concomitant]
  8. PRAVACHOL [Concomitant]
  9. PLAVIX [Concomitant]
  10. HYDROCHLOROTHIAZIDE [Concomitant]
  11. GLIPIZIDE [Concomitant]
  12. PROTONIX [Concomitant]

REACTIONS (1)
  - DYSGEUSIA [None]
